FAERS Safety Report 7114431-2 (Version None)
Quarter: 2010Q4

REPORT INFORMATION
  Report Type: 
  Country: None (occurrence: None)
  Receive Date: 20101119
  Receipt Date: 20101111
  Transmission Date: 20110411
  Serious: Yes (Life-Threatening)
  Sender: FDA-Public Use
  Company Number: PT-AMGEN-BIOFARMACEUTICA, LDA.-KDC439186

PATIENT

DRUGS (13)
  1. DARBEPOETIN ALFA [Suspect]
     Indication: RENAL FAILURE CHRONIC
     Dates: start: 20100302
  2. FINASTERIDE [Concomitant]
  3. LEVODOPA [Concomitant]
  4. CARBIDOPA [Concomitant]
  5. ASPIRIN [Concomitant]
  6. INSULATARD                         /00030504/ [Concomitant]
  7. LANSOPRAZOLE [Concomitant]
  8. METOCLOPRAMIDE [Concomitant]
  9. RAMIPRIL [Concomitant]
     Dosage: 10 MG, BID
     Route: 048
     Dates: start: 20080101
  10. CLONIDINE [Concomitant]
     Dosage: UNK UNK, UNK
     Route: 048
     Dates: start: 20081101
  11. FUROSEMIDE [Concomitant]
     Dosage: 80 MG, QD
     Route: 048
     Dates: start: 20081001
  12. METOLAZONE [Concomitant]
     Dosage: 5 MG, QD
     Route: 048
     Dates: start: 20081101
  13. NIFEDIPINE [Concomitant]
     Dosage: 30 MG, TID
     Route: 048
     Dates: start: 20081101

REACTIONS (2)
  - HYPOGLYCAEMIA [None]
  - LOSS OF CONSCIOUSNESS [None]
